FAERS Safety Report 5580308-7 (Version None)
Quarter: 2007Q4

REPORT INFORMATION
  Report Type: 
  Country: None (occurrence: None)
  Receive Date: 20071130
  Receipt Date: 20070628
  Transmission Date: 20080405
  Serious: No
  Sender: FDA-Public Use
  Company Number: US200707000460

PATIENT
  Age: 61 Year
  Sex: Female
  Weight: 92.1 kg

DRUGS (3)
  1. BYETTA [Suspect]
     Indication: TYPE 2 DIABETES MELLITUS
     Dosage: 5 UG, 2/D, 10 UG, 2/D SUBCUTANEOUS
     Route: 058
     Dates: start: 20070201, end: 20070624
  2. BYETTA [Suspect]
     Indication: TYPE 2 DIABETES MELLITUS
     Dosage: 5 UG, 2/D, 10 UG, 2/D SUBCUTANEOUS
     Route: 058
     Dates: start: 20070625, end: 20070626
  3. PRANDN (DEFLAZACORT) [Concomitant]

REACTIONS (15)
  - AGITATION [None]
  - BLOOD GLUCOSE DECREASED [None]
  - DRUG INEFFECTIVE [None]
  - DYSARTHRIA [None]
  - FATIGUE [None]
  - FEELING COLD [None]
  - FEELING JITTERY [None]
  - HYPOAESTHESIA ORAL [None]
  - MALAISE [None]
  - NAUSEA [None]
  - NERVOUSNESS [None]
  - PHARYNGEAL HYPOAESTHESIA [None]
  - SOMNOLENCE [None]
  - VISUAL DISTURBANCE [None]
  - WEIGHT DECREASED [None]
